FAERS Safety Report 15254165 (Version 1)
Quarter: 2018Q3

REPORT INFORMATION
  Report Type: Spontaneous
  Country: US (occurrence: US)
  Receive Date: 20180717
  Receipt Date: 20180717
  Transmission Date: 20181010
  Serious: Yes (Hospitalization)
  Sender: FDA-Public Use
  Company Number: None

PATIENT
  Age: 68 Year
  Sex: Male
  Weight: 95 kg

DRUGS (2)
  1. ACETAMINOPHEN. [Suspect]
     Active Substance: ACETAMINOPHEN
     Indication: PAIN
     Dates: start: 20180227, end: 20180313
  2. ACETAMINOPHEN. [Suspect]
     Active Substance: ACETAMINOPHEN
     Indication: SURGERY
     Dates: start: 20180227, end: 20180313

REACTIONS (12)
  - Headache [None]
  - Tachypnoea [None]
  - Confusional state [None]
  - Angioedema [None]
  - Erythema [None]
  - Dizziness [None]
  - Rash [None]
  - Urticaria [None]
  - Pruritus [None]
  - Skin exfoliation [None]
  - Swelling [None]
  - Hallucination [None]

NARRATIVE: CASE EVENT DATE: 20180228
